FAERS Safety Report 6980224-X (Version None)
Quarter: 2010Q3

REPORT INFORMATION
  Report Type: 
  Country: None (occurrence: None)
  Receive Date: 20100914
  Receipt Date: 20100906
  Transmission Date: 20110219
  Serious: Yes (Hospitalization)
  Sender: FDA-Public Use
  Company Number: JP-RB-014979-10

PATIENT
  Age: 80 Year
  Sex: Male

DRUGS (1)
  1. LEPETAN INJECTION [Suspect]
     Indication: PRODUCT USED FOR UNKNOWN INDICATION
     Dosage: UNKNOWN DOSING DETAILS
     Route: 041
     Dates: start: 20100825, end: 20100830

REACTIONS (4)
  - ANXIETY [None]
  - DELIRIUM [None]
  - DEPRESSION [None]
  - HALLUCINATION [None]
